FAERS Safety Report 21505955 (Version 1)
Quarter: 2022Q4

REPORT INFORMATION
  Report Type: Report from Study
  Country: US (occurrence: US)
  Receive Date: 20221026
  Receipt Date: 20221026
  Transmission Date: 20230113
  Serious: Yes (Hospitalization, Other)
  Sender: FDA-Public Use
  Company Number: US-BAUSCH-BL-2022-024166

PATIENT
  Age: 40 Year
  Sex: Male

DRUGS (1)
  1. XIFAXAN [Suspect]
     Active Substance: RIFAXIMIN
     Indication: Hepatic encephalopathy
     Route: 048

REACTIONS (6)
  - Loss of consciousness [Unknown]
  - Fluid retention [Unknown]
  - Insomnia [Unknown]
  - Vomiting [Unknown]
  - Muscle spasms [Unknown]
  - Constipation [Unknown]
